FAERS Safety Report 5939353-1 (Version None)
Quarter: 2008Q4

REPORT INFORMATION
  Report Type: 
  Country: None (occurrence: None)
  Receive Date: 20081103
  Receipt Date: 20081028
  Transmission Date: 20090506
  Serious: Yes (Hospitalization)
  Sender: FDA-Public Use
  Company Number: US-B.I. PHARMACEUTICALS,INC./RIDGEFIELD-2008-BP-16426BP

PATIENT
  Sex: Male

DRUGS (4)
  1. SPIRIVA [Suspect]
     Indication: CHRONIC OBSTRUCTIVE PULMONARY DISEASE
     Dosage: 18MCG
     Route: 055
  2. ADVAIR DISKUS 100/50 [Concomitant]
  3. PLAVIX [Concomitant]
  4. VITAMINS [Concomitant]

REACTIONS (2)
  - LOCALISED INFECTION [None]
  - PLEURAL EFFUSION [None]
